FAERS Safety Report 14847138 (Version 2)
Quarter: 2018Q2

REPORT INFORMATION
  Report Type: Report from Study
  Country: BG (occurrence: BG)
  Receive Date: 20180504
  Receipt Date: 20180523
  Transmission Date: 20180711
  Serious: Yes (Death)
  Sender: FDA-Public Use
  Company Number: BG-BAYER-2018-081282

PATIENT
  Age: 68 Year
  Sex: Male

DRUGS (1)
  1. NEXAVAR [Suspect]
     Active Substance: SORAFENIB
     Indication: HEPATOCELLULAR CARCINOMA
     Dosage: 200 MG, QD
     Dates: start: 20171102, end: 201804

REACTIONS (3)
  - Atrial fibrillation [Fatal]
  - Cardiac failure acute [Fatal]
  - Off label use [None]

NARRATIVE: CASE EVENT DATE: 20171102
